FAERS Safety Report 5935626-7 (Version None)
Quarter: 2008Q4

REPORT INFORMATION
  Report Type: 
  Country: None (occurrence: None)
  Receive Date: 20081030
  Receipt Date: 20080328
  Transmission Date: 20090506
  Serious: Yes (Hospitalization)
  Sender: FDA-Public Use
  Company Number: US-ASTRAZENECA-2007UW25117

PATIENT
  Age: 54 Year
  Sex: Female

DRUGS (69)
  1. SEROQUEL [Suspect]
     Indication: DEPRESSION
     Dosage: 25 MG, 50  MG, 100 MG, 200 MG AT BEDTIME
     Route: 048
     Dates: start: 20040123, end: 20060101
  2. SEROQUEL [Suspect]
     Indication: SLEEP DISORDER
     Dosage: 25 MG, 50  MG, 100 MG, 200 MG AT BEDTIME
     Route: 048
     Dates: start: 20040123, end: 20060101
  3. LEXAPRO [Concomitant]
  4. INTERFERON [Concomitant]
  5. REMERON [Concomitant]
  6. HYDROCODONE BITARTRATE [Concomitant]
  7. OXYCODONE HCL [Concomitant]
  8. METHADONE HCL [Concomitant]
  9. ACTIGALL [Concomitant]
  10. DETROL [Concomitant]
  11. NORVASC [Concomitant]
  12. GLIMEPIRIDE [Concomitant]
  13. TRAZODONE HCL [Concomitant]
  14. HYDROXYZINE [Concomitant]
  15. ENALAPRIL MALEATE [Concomitant]
  16. LASIX [Concomitant]
  17. CARBAMAZEPINE [Concomitant]
  18. ADVAIR DISKUS 100/50 [Concomitant]
  19. SKELAXIN [Concomitant]
  20. LORATADINE [Concomitant]
  21. POTASSIUM CHLORIDE [Concomitant]
  22. PREDNISONE TAB [Concomitant]
  23. HYDROCHLOROTHIAZIDE [Concomitant]
  24. PROMETHAZINE [Concomitant]
  25. DOXEPIN HCL [Concomitant]
  26. SULFATRIM [Concomitant]
  27. DIFLUCAN [Concomitant]
  28. IBUPROFEN TABLETS [Concomitant]
  29. LAMISIL [Concomitant]
  30. COMBIVENT [Concomitant]
  31. ARTIFICIAL TEARS [Concomitant]
  32. FLONASE [Concomitant]
  33. TRIAMCINOLONE [Concomitant]
  34. AMBIEN [Concomitant]
  35. DILANTIN [Concomitant]
  36. APAP W/ CODEINE [Concomitant]
  37. CEPHALEXIN [Concomitant]
  38. CYCLOBENZAPRINE HCL [Concomitant]
  39. BENZONATATE [Concomitant]
  40. AUGMENTIN '125' [Concomitant]
  41. BIAXIN [Concomitant]
  42. RANITIDINE [Concomitant]
  43. OMNICEF [Concomitant]
  44. FERROUS SULFATE [Concomitant]
  45. TIZANIDINE HCL [Concomitant]
  46. CLEMASTINE FUMARATE [Concomitant]
  47. CLOTRIMAZOLE [Concomitant]
  48. ORPHENADRINE CITRATE [Concomitant]
  49. KETEK [Concomitant]
  50. ALLERX-D [Concomitant]
  51. CARISOPRODOL [Concomitant]
  52. CEFUROXIME [Concomitant]
  53. CHANTEX LA [Concomitant]
  54. TUSSIN DM [Concomitant]
  55. SINGULAIR [Concomitant]
  56. DOXYCYCLINE [Concomitant]
  57. HYDROMET [Concomitant]
  58. ACTOS [Concomitant]
  59. CITALOPRAM HYDROBROMIDE [Concomitant]
  60. GUAIFENESIN [Concomitant]
  61. ARTHROTEC [Concomitant]
  62. DICYCLOMINE [Concomitant]
  63. LYRICA [Concomitant]
  64. ASPIRIN [Concomitant]
  65. HUMULIN R [Concomitant]
  66. CLINDAMYCIN HCL [Concomitant]
  67. DAILY VITAMIN + IRON [Concomitant]
  68. TRIPLE ANTIBIOTICS [Concomitant]
  69. TETRACYCLINE [Concomitant]

REACTIONS (6)
  - BLOOD PRESSURE INCREASED [None]
  - CARDIAC FAILURE CONGESTIVE [None]
  - DIABETIC RETINOPATHY [None]
  - OEDEMA PERIPHERAL [None]
  - PULMONARY HYPERTENSION [None]
  - RETINAL DETACHMENT [None]
